FAERS Safety Report 5355085-5 (Version None)
Quarter: 2007Q2

REPORT INFORMATION
  Report Type: 
  Country: None (occurrence: None)
  Receive Date: 20070524
  Receipt Date: 20070222
  Transmission Date: 20071010
  Serious: Yes (Hospitalization)
  Sender: FDA-Public Use
  Company Number: 483895

PATIENT
  Age: 65 Year
  Sex: Male

DRUGS (1)
  1. VALCYTE [Suspect]
     Indication: DRUG USE FOR UNKNOWN INDICATION
     Dates: start: 20060715, end: 20060915

REACTIONS (1)
  - CYTOMEGALOVIRUS INFECTION [None]
